FAERS Safety Report 9501964 (Version 1)
Quarter: 2013Q3

REPORT INFORMATION
  Report Type: Spontaneous
  Country: US (occurrence: US)
  Receive Date: 20130905
  Receipt Date: 20130905
  Transmission Date: 20140515
  Serious: No
  Sender: FDA-Public Use
  Company Number: US-009507513-1309USA002156

PATIENT
  Sex: Female

DRUGS (2)
  1. CLARITIN REDITABS [Suspect]
     Indication: PRODUCT USED FOR UNKNOWN INDICATION
     Dosage: 10 MG, UNKNOWN
     Route: 048
  2. CLARITIN REDITABS [Suspect]
     Indication: MEDICAL OBSERVATION

REACTIONS (1)
  - Feeling abnormal [Unknown]
